FAERS Safety Report 5139617-8 (Version None)
Quarter: 2006Q4

REPORT INFORMATION
  Report Type: 
  Country: None (occurrence: None)
  Receive Date: 20061024
  Receipt Date: 20061011
  Transmission Date: 20070319
  Serious: Yes (Hospitalization)
  Sender: FDA-Public Use
  Company Number: 2006-148034-NL

PATIENT
  Age: 40 Year
  Sex: Female

DRUGS (3)
  1. MARVELON [Suspect]
     Indication: AMENORRHOEA
     Dosage: DF, ORAL
     Route: 048
     Dates: start: 20060124, end: 20060907
  2. PL [Concomitant]
  3. CLARITHROMYCIN [Concomitant]

REACTIONS (6)
  - ENDOCARDITIS [None]
  - HEPATIC FUNCTION ABNORMAL [None]
  - IMMUNOGLOBULINS DECREASED [None]
  - MITRAL VALVE INCOMPETENCE [None]
  - PLATELET COUNT DECREASED [None]
  - STAPHYLOCOCCAL SEPSIS [None]
